FAERS Safety Report 7199184-4 (Version None)
Quarter: 2010Q4

REPORT INFORMATION
  Report Type: 
  Country: None (occurrence: None)
  Receive Date: 20101215
  Receipt Date: 20101206
  Transmission Date: 20110411
  Serious: Yes (Other)
  Sender: FDA-Public Use
  Company Number: DSA_44493_2010

PATIENT
  Sex: Female

DRUGS (3)
  1. ZYBAN [Suspect]
     Indication: WEIGHT CONTROL
     Dosage: 150 MG QD  ORAL, 150 MG, ORAL
     Dates: start: 20100901
  2. ZYBAN [Suspect]
     Indication: WEIGHT CONTROL
     Dosage: 150 MG QD  ORAL, 150 MG, ORAL
     Dates: start: 20101203
  3. DIDERAL [Concomitant]

REACTIONS (6)
  - ABDOMINAL DISTENSION [None]
  - BLOOD GLUCOSE INCREASED [None]
  - DECREASED APPETITE [None]
  - EPHELIDES [None]
  - MELANOCYTIC NAEVUS [None]
  - THERAPEUTIC RESPONSE UNEXPECTED [None]
